FAERS Safety Report 19845412 (Version 2)
Quarter: 2021Q3

REPORT INFORMATION
  Report Type: Spontaneous
  Country: GB (occurrence: GB)
  Receive Date: 20210917
  Receipt Date: 20210924
  Transmission Date: 20211014
  Serious: Yes (Other)
  Sender: FDA-Public Use
  Company Number: NVSC2021GB207327

PATIENT
  Age: 58 Year
  Sex: Male
  Weight: 73.02 kg

DRUGS (1)
  1. MAXITROL [Suspect]
     Active Substance: DEXAMETHASONE\NEOMYCIN SULFATE\POLYMYXIN B SULFATE
     Indication: ILL-DEFINED DISORDER
     Dosage: UNK, 4
     Route: 047
     Dates: start: 20210907

REACTIONS (1)
  - Adverse drug reaction [Not Recovered/Not Resolved]

NARRATIVE: CASE EVENT DATE: 20210908
